FAERS Safety Report 21938880 (Version 1)
Quarter: 2023Q1

REPORT INFORMATION
  Report Type: Report from Study
  Country: US (occurrence: US)
  Receive Date: 20230201
  Receipt Date: 20230201
  Transmission Date: 20230417
  Serious: Yes (Other)
  Sender: FDA-Public Use
  Company Number: US-EXELIXIS-CABO-22051931

PATIENT
  Sex: Male

DRUGS (1)
  1. CABOMETYX [Suspect]
     Active Substance: CABOZANTINIB S-MALATE
     Indication: Renal cancer
     Dosage: 40 MG, QD
     Route: 048
     Dates: start: 20220419

REACTIONS (14)
  - Pulmonary embolism [Unknown]
  - Agitation [Unknown]
  - Hypoaesthesia oral [Unknown]
  - Ageusia [Unknown]
  - Contusion [Unknown]
  - Malaise [Unknown]
  - Rectal tenesmus [Unknown]
  - Pain [Unknown]
  - Deep vein thrombosis [Unknown]
  - Blood pressure increased [Unknown]
  - Fatigue [Unknown]
  - Asthenia [Unknown]
  - Diarrhoea [Unknown]
  - COVID-19 [Unknown]
